FAERS Safety Report 11302474 (Version 1)
Quarter: 2015Q3

REPORT INFORMATION
  Report Type: Spontaneous
  Country: IT (occurrence: IT)
  Receive Date: 20150723
  Receipt Date: 20150723
  Transmission Date: 20151125
  Serious: Yes (Hospitalization)
  Sender: FDA-Public Use
  Company Number: IT-JNJFOC-20150714264

PATIENT
  Age: 50 Year
  Sex: Female

DRUGS (1)
  1. CAELYX [Suspect]
     Active Substance: DOXORUBICIN HYDROCHLORIDE
     Indication: OVARIAN CANCER
     Dosage: 2 MG/ML 52 MG TOTAL
     Route: 040
     Dates: start: 20150701, end: 20150701

REACTIONS (4)
  - Abdominal pain upper [Recovered/Resolved]
  - Tachycardia [Recovered/Resolved]
  - Wrong technique in product usage process [Unknown]
  - Infusion related reaction [Recovered/Resolved]

NARRATIVE: CASE EVENT DATE: 20150701
